FAERS Safety Report 4635046-1 (Version None)
Quarter: 2005Q2

REPORT INFORMATION
  Report Type: 
  Country: None (occurrence: None)
  Receive Date: 20050414
  Receipt Date: 20050404
  Transmission Date: 20051028
  Serious: Yes (Hospitalization)
  Sender: FDA-Public Use
  Company Number: PHBS2005DE04991

PATIENT
  Age: 72 Year
  Sex: Female

DRUGS (2)
  1. IMATINIB [Suspect]
     Indication: GASTROINTESTINAL STROMAL TUMOUR
     Dosage: 400 MG, QD
     Dates: start: 20020101
  2. ARTICAINE [Concomitant]
     Indication: LOCAL ANAESTHESIA

REACTIONS (7)
  - BLOOD CREATINE PHOSPHOKINASE INCREASED [None]
  - BRADYPNOEA [None]
  - COMA [None]
  - CYANOSIS [None]
  - FACE OEDEMA [None]
  - HYPOTENSION [None]
  - RESPIRATORY FAILURE [None]
